FAERS Safety Report 15365358 (Version 6)
Quarter: 2020Q4

REPORT INFORMATION
  Report Type: Spontaneous
  Country: US (occurrence: US)
  Receive Date: 20180910
  Receipt Date: 20201229
  Transmission Date: 20210113
  Serious: No
  Sender: FDA-Public Use
  Company Number: US-PFIZER INC-2018362122

PATIENT
  Age: 49 Year
  Sex: Female
  Weight: 122 kg

DRUGS (4)
  1. GENOTROPIN MQ [Suspect]
     Active Substance: SOMATROPIN
     Indication: HYPOTHALAMO-PITUITARY DISORDER
     Dosage: 0.6 MG, UNK
  2. GENOTROPIN MQ [Suspect]
     Active Substance: SOMATROPIN
     Dosage: 0.8 MG, 1X/DAY
     Route: 058
     Dates: start: 2017
  3. GENOTROPIN MQ [Suspect]
     Active Substance: SOMATROPIN
     Dosage: 0.8 MG, DAILY
     Dates: start: 20180326
  4. TIROSINT [Concomitant]
     Active Substance: LEVOTHYROXINE SODIUM
     Indication: THYROID DISORDER
     Dosage: UNK (MONDAY THROUGH FRIDAY 1000MCG BY MOUTH EACH DAY; ON SATURDAY AND SUNDAY 2000MCG BY MOUTH)
     Route: 048
     Dates: start: 2019

REACTIONS (2)
  - Product dose omission issue [Unknown]
  - Therapeutic product effect incomplete [Unknown]
